FAERS Safety Report 5165039-X (Version None)
Quarter: 2006Q4

REPORT INFORMATION
  Report Type: 
  Country: None (occurrence: None)
  Receive Date: 20061124
  Receipt Date: 20061110
  Transmission Date: 20070319
  Serious: Yes (Hospitalization)
  Sender: FDA-Public Use
  Company Number: 2006111093

PATIENT
  Age: 41 Year
  Sex: Female
  Weight: 49 kg

DRUGS (12)
  1. SUTENT [Suspect]
     Indication: RENAL CELL CARCINOMA STAGE UNSPECIFIED
     Dosage: SEE IMAGE
     Route: 048
     Dates: start: 20060515, end: 20060901
  2. SUTENT [Suspect]
     Indication: RENAL CELL CARCINOMA STAGE UNSPECIFIED
     Dosage: SEE IMAGE
     Route: 048
     Dates: start: 20060626
  3. PAMIDRONATE DISODIUM [Concomitant]
  4. OXYCODONE HCL [Concomitant]
  5. IBUPROFEN [Concomitant]
  6. CLONAZEPAM [Concomitant]
  7. IRON PREPARATIONS (IRON PREPARATIONS) [Concomitant]
  8. GABAPENTIN [Concomitant]
  9. ACETAMINOPHEN [Concomitant]
  10. PANTOPRAZOLE SODIUM [Concomitant]
  11. DOMPERIDONE (DOMPERIDONE) [Concomitant]
  12. AMILORIDE W/HYDROCHLOROTHIAZIDE (AMILORIDE, HYDROCHLOROTHIAZIDE) [Concomitant]

REACTIONS (9)
  - ASTHENIA [None]
  - CULTURE POSITIVE [None]
  - ESCHERICHIA INFECTION [None]
  - HAEMATOCRIT DECREASED [None]
  - METASTASES TO BONE [None]
  - MUCOSAL INFLAMMATION [None]
  - POSTOPERATIVE WOUND INFECTION [None]
  - SPINAL CORD COMPRESSION [None]
  - WHITE BLOOD CELL COUNT DECREASED [None]
